FAERS Safety Report 21734988 (Version 1)
Quarter: 2022Q4

REPORT INFORMATION
  Report Type: Spontaneous
  Country: CN (occurrence: None)
  Receive Date: 20221215
  Receipt Date: 20221215
  Transmission Date: 20230113
  Serious: Yes (Other)
  Sender: FDA-Public Use
  Company Number: CN-ROCHE-3237865

PATIENT
  Weight: 84 kg

DRUGS (5)
  1. GAZYVA [Suspect]
     Active Substance: OBINUTUZUMAB
     Indication: Lymphoma
     Dosage: CONTINUOUS INTRAVENOUS INJECTION
     Route: 042
     Dates: start: 20221109
  2. GAZYVA [Suspect]
     Active Substance: OBINUTUZUMAB
     Route: 042
     Dates: start: 20221109
  3. DEXAMETHASONE SODIUM PHOSPHATE [Concomitant]
     Active Substance: DEXAMETHASONE SODIUM PHOSPHATE
     Indication: Lymphoma
     Dosage: FROM 07/NOV/2022 TO 10/NOV/2022, FOR 4 CYCLES
     Route: 042
     Dates: start: 20221107, end: 20221110
  4. BENDAMUSTINE [Concomitant]
     Active Substance: BENDAMUSTINE
     Indication: Lymphoma
     Dosage: SUSPENSION ON 10/NOV/2022
  5. PROMETHAZINE HYDROCHLORIDE [Concomitant]
     Active Substance: PROMETHAZINE HYDROCHLORIDE
     Indication: Lymphoma
     Route: 030
     Dates: start: 20221109

REACTIONS (4)
  - Chills [Unknown]
  - Pyrexia [Unknown]
  - Platelet count decreased [Unknown]
  - Atrial fibrillation [Unknown]

NARRATIVE: CASE EVENT DATE: 20221109
